FAERS Safety Report 4581972-1 (Version None)
Quarter: 2005Q1

REPORT INFORMATION
  Report Type: 
  Country: None (occurrence: None)
  Receive Date: 20050119
  Receipt Date: 20040217
  Transmission Date: 20050727
  Serious: Yes (Death)
  Sender: FDA-Public Use
  Company Number: US-JNJFOC-20040203472

PATIENT
  Age: 59 Year
  Sex: Female

DRUGS (2)
  1. DOXIL [Suspect]
     Indication: NON-HODGKIN'S LYMPHOMA
     Dosage: ,   2 IN 1 WEEK, INTRAVENOUS
     Route: 042
     Dates: start: 20030710, end: 20030711
  2. DOXIL [Suspect]
     Indication: NON-HODGKIN'S LYMPHOMA
     Dosage: ,   2 IN 1 WEEK, INTRAVENOUS
     Route: 042
     Dates: start: 20030806, end: 20030809

REACTIONS (1)
  - MALIGNANT NEOPLASM PROGRESSION [None]
